FAERS Safety Report 6868091-6 (Version None)
Quarter: 2010Q3

REPORT INFORMATION
  Report Type: 
  Country: None (occurrence: None)
  Receive Date: 20100722
  Receipt Date: 20080517
  Transmission Date: 20110219
  Serious: No
  Sender: FDA-Public Use
  Company Number: US-PFIZER INC-2008043822

PATIENT
  Sex: Female
  Weight: 45.36 kg

DRUGS (8)
  1. CHANTIX [Suspect]
     Indication: SMOKING CESSATION THERAPY
     Dates: start: 20080511
  2. METFORMIN [Concomitant]
     Indication: DIABETES MELLITUS
  3. VYTORIN [Concomitant]
     Indication: BLOOD CHOLESTEROL INCREASED
  4. TRICOR [Concomitant]
  5. LISINOPRIL [Concomitant]
  6. NIASPAN [Concomitant]
  7. SYNTHROID [Concomitant]
     Indication: THYROID DISORDER
  8. ACETYLSALICYLIC ACID [Concomitant]

REACTIONS (4)
  - DYSGEUSIA [None]
  - MALAISE [None]
  - NAUSEA [None]
  - VOMITING [None]
